FAERS Safety Report 13134089 (Version 1)
Quarter: 2017Q1

REPORT INFORMATION
  Report Type: Spontaneous
  Country: US (occurrence: US)
  Receive Date: 20170120
  Receipt Date: 20170120
  Transmission Date: 20170428
  Serious: Yes (Other)
  Sender: FDA-Public Use
  Company Number: None

PATIENT
  Age: 41 Year
  Sex: Female
  Weight: 79.45 kg

DRUGS (8)
  1. SKELAXIN [Concomitant]
     Active Substance: METAXALONE
  2. AZATHIOPRINE. [Suspect]
     Active Substance: AZATHIOPRINE
     Indication: URTICARIA CHRONIC
     Dosage: QUANTITY: 1 TABLET X2 WEEK 2 TABLET X2 WEEK
     Route: 048
     Dates: start: 20161212, end: 20161223
  3. MULTIVITAMIN [Concomitant]
     Active Substance: VITAMINS
  4. DOXEPIN [Concomitant]
     Active Substance: DOXEPIN
  5. ALEVE [Concomitant]
     Active Substance: NAPROXEN SODIUM
  6. BELSOMRA [Concomitant]
     Active Substance: SUVOREXANT
  7. ZYRTEC [Concomitant]
     Active Substance: CETIRIZINE HYDROCHLORIDE
  8. UREA 20% CREAM [Concomitant]

REACTIONS (9)
  - Pruritus [None]
  - Urticaria [None]
  - White blood cell count decreased [None]
  - Headache [None]
  - Immune system disorder [None]
  - Feeling cold [None]
  - Peripheral coldness [None]
  - Alopecia [None]
  - Decreased appetite [None]

NARRATIVE: CASE EVENT DATE: 20170103
